FAERS Safety Report 6126885-9 (Version None)
Quarter: 2009Q1

REPORT INFORMATION
  Report Type: 
  Country: None (occurrence: None)
  Receive Date: 20090320
  Receipt Date: 20080827
  Transmission Date: 20090719
  Serious: No
  Sender: FDA-Public Use
  Company Number: US-ABBOTT-08P-163-0472708-00

PATIENT
  Sex: Female
  Weight: 76.272 kg

DRUGS (2)
  1. ERYTHROMYCIN BASE [Suspect]
     Indication: PNEUMONIA
     Route: 048
     Dates: start: 19930401, end: 19930401
  2. BENADRYL [Concomitant]
     Indication: HYPERSENSITIVITY
     Dates: start: 19930401, end: 19930401

REACTIONS (4)
  - HYPERSENSITIVITY [None]
  - PRURITUS [None]
  - RASH ERYTHEMATOUS [None]
  - RASH PRURITIC [None]
